FAERS Safety Report 8360409-0 (Version None)
Quarter: 2012Q1

REPORT INFORMATION
  Report Type: 
  Country: None (occurrence: None)
  Receive Date: 20120315
  Receipt Date: 20110224
  Transmission Date: 20120608
  Serious: Yes (Other)
  Sender: FDA-Public Use
  Company Number: PHHY2011US16494

PATIENT
  Age: 49 Year
  Sex: Female

DRUGS (7)
  1. KADIAN [Concomitant]
  2. PERCOCET [Concomitant]
  3. STEROIDS NOS [Concomitant]
  4. GILENYA [Suspect]
     Indication: MULTIPLE SCLEROSIS
     Dosage: 0.5 MG, QD, ORAL
     Route: 048
     Dates: start: 20101201
  5. TIZANIDINE HCL [Concomitant]
  6. AMPYRA [Concomitant]
  7. SOLU-MEDROL [Concomitant]

REACTIONS (1)
  - WHITE BLOOD CELL COUNT DECREASED [None]
